FAERS Safety Report 4385044-0 (Version None)
Quarter: 2004Q2

REPORT INFORMATION
  Report Type: 
  Country: None (occurrence: None)
  Receive Date: 20040625
  Receipt Date: 20040614
  Transmission Date: 20050107
  Serious: Yes (Hospitalization)
  Sender: FDA-Public Use
  Company Number: SE-GLAXOSMITHKLINE-B0335868A

PATIENT
  Age: 77 Year
  Sex: Male

DRUGS (8)
  1. VALTREX [Suspect]
     Indication: HERPES ZOSTER
     Dosage: 3G PER DAY
     Route: 048
     Dates: start: 20030415, end: 20030418
  2. PLENDIL [Concomitant]
     Route: 048
  3. ATENOLOL [Concomitant]
  4. ZOCORD [Concomitant]
  5. COZAAR [Concomitant]
  6. ETALPHA [Concomitant]
  7. NITROMEX [Concomitant]
  8. FEM MONO [Concomitant]
     Route: 048

REACTIONS (3)
  - FATIGUE [None]
  - HALLUCINATION [None]
  - LETHARGY [None]
